FAERS Safety Report 5637658-5 (Version None)
Quarter: 2008Q1

REPORT INFORMATION
  Report Type: 
  Country: None (occurrence: None)
  Receive Date: 20080220
  Receipt Date: 20080205
  Transmission Date: 20080703
  Serious: Yes (Life-Threatening, Hospitalization, Other)
  Sender: FDA-Public Use
  Company Number: PAR_02106_2008

PATIENT
  Age: 14 Year
  Sex: Male

DRUGS (3)
  1. IBUPROFEN [Suspect]
     Indication: PAIN
     Dosage: (300 MG 1X/6 HOURS)
  2. IBUPROFEN [Suspect]
     Indication: PYREXIA
     Dosage: (300 MG 1X/6 HOURS)
  3. ASPIRIN [Suspect]
     Indication: ABNORMAL CLOTTING FACTOR

REACTIONS (15)
  - AZOTAEMIA [None]
  - BLOOD POTASSIUM INCREASED [None]
  - BLOOD URINE [None]
  - DIALYSIS [None]
  - DISORIENTATION [None]
  - DRUG HYPERSENSITIVITY [None]
  - MALAISE [None]
  - ORAL INTAKE REDUCED [None]
  - PAIN [None]
  - PROTEINURIA [None]
  - PYREXIA [None]
  - RENAL FAILURE ACUTE [None]
  - TUBULOINTERSTITIAL NEPHRITIS [None]
  - VOMITING [None]
  - WHITE BLOOD CELL COUNT INCREASED [None]
